FAERS Safety Report 8967654 (Version 1)
Quarter: 2012Q4

REPORT INFORMATION
  Report Type: 
  Country: US (occurrence: None)
  Receive Date: 20121204
  Receipt Date: 20121204
  Transmission Date: 20130627
  Serious: Yes (Other)
  Sender: FDA-Public Use
  Company Number: 2012MA013607

PATIENT
  Age: 57 Year
  Sex: Male

DRUGS (1)
  1. OXYCODONE HCL [Suspect]
     Indication: PAIN
     Route: 048
     Dates: start: 20121114, end: 20121117

REACTIONS (8)
  - Malaise [None]
  - Urticaria [None]
  - Drug ineffective [None]
  - Drug withdrawal syndrome [None]
  - Vomiting [None]
  - Diarrhoea [None]
  - Nausea [None]
  - Suicidal ideation [None]
